FAERS Safety Report 22833261 (Version 3)
Quarter: 2025Q1

REPORT INFORMATION
  Report Type: Report from Study
  Country: US (occurrence: US)
  Receive Date: 20230817
  Receipt Date: 20250203
  Transmission Date: 20250408
  Serious: Yes (Hospitalization)
  Sender: ABBVIE
  Company Number: US-ABBVIE-5369343

PATIENT
  Age: 34 Year
  Sex: Male

DRUGS (4)
  1. RINVOQ [Suspect]
     Active Substance: UPADACITINIB
     Indication: Dermatitis atopic
     Dosage: FORM STRENGTH WAS 30 MILLIGRAM
     Route: 048
     Dates: start: 202306, end: 202308
  2. RINVOQ [Suspect]
     Active Substance: UPADACITINIB
     Indication: Dermatitis atopic
     Dosage: LAST ADMIN DATE - 2023?FORM STRENGTH WAS 30 MILLIGRAM
     Route: 048
     Dates: start: 20230213
  3. RINVOQ [Suspect]
     Active Substance: UPADACITINIB
     Indication: Dermatitis atopic
     Dosage: FORM STRENGTH WAS 30 MILLIGRAM, LAST ADMIN DATE-2024
     Route: 048
     Dates: start: 202406
  4. RINVOQ [Suspect]
     Active Substance: UPADACITINIB
     Indication: Dermatitis atopic
     Dosage: FORM STRENGTH WAS 30 MILLIGRAM
     Route: 048

REACTIONS (8)
  - Arthritis infective [Recovered/Resolved]
  - Pruritus [Recovered/Resolved]
  - Rash [Recovering/Resolving]
  - Joint swelling [Recovered/Resolved]
  - Skin exfoliation [Recovering/Resolving]
  - Skin discolouration [Recovering/Resolving]
  - Skin fissures [Recovering/Resolving]
  - Skin discharge [Recovering/Resolving]

NARRATIVE: CASE EVENT DATE: 20230101
